FAERS Safety Report 4506163-1 (Version None)
Quarter: 2004Q4

REPORT INFORMATION
  Report Type: 
  Country: None (occurrence: None)
  Receive Date: 20041025
  Receipt Date: 20040726
  Transmission Date: 20050328
  Serious: Yes (Other)
  Sender: FDA-Public Use
  Company Number: US-JNJFOC-20040402992

PATIENT
  Age: 9 Year
  Sex: Female
  Weight: 59 kg

DRUGS (5)
  1. REMICADE [Suspect]
     Indication: CROHN'S DISEASE
     Dosage: 150 MG, INTRAVENOUS
     Route: 042
     Dates: start: 20020930
  2. PENTASA [Concomitant]
  3. ZANTAC [Concomitant]
  4. MERCAPTOPURINE [Concomitant]
  5. ENTOCORT (BUDESONIDE) [Concomitant]

REACTIONS (3)
  - OESOPHAGEAL CANDIDIASIS [None]
  - OTITIS MEDIA [None]
  - STREPTOCOCCAL INFECTION [None]
